FAERS Safety Report 8576629-6 (Version None)
Quarter: 2012Q3

REPORT INFORMATION
  Report Type: 
  Country: None (occurrence: None)
  Receive Date: 20120807
  Receipt Date: 20110902
  Transmission Date: 20120928
  Serious: Yes (Hospitalization, Other)
  Sender: FDA-Public Use
  Company Number: DE-CELGENEUS-062-50794-12052824

PATIENT
  Sex: Female

DRUGS (1)
  1. VIDAZA [Suspect]
     Route: 058
     Dates: start: 20101111, end: 20110408

REACTIONS (13)
  - CHRONIC OBSTRUCTIVE PULMONARY DISEASE [None]
  - WHITE BLOOD CELL COUNT DECREASED [None]
  - NO THERAPEUTIC RESPONSE [None]
  - GENERAL PHYSICAL HEALTH DETERIORATION [None]
  - PNEUMONIA [None]
  - VOMITING [None]
  - HAEMOGLOBIN DECREASED [None]
  - DYSPNOEA [None]
  - ORAL CANDIDIASIS [None]
  - PLATELET COUNT DECREASED [None]
  - NAUSEA [None]
  - BRONCHITIS [None]
  - PYREXIA [None]
